FAERS Safety Report 8528066 (Version 3)
Quarter: 2013Q3

REPORT INFORMATION
  Report Type: Spontaneous
  Country: BR (occurrence: BR)
  Receive Date: 20120424
  Receipt Date: 20130807
  Transmission Date: 20140515
  Serious: Yes (Other)
  Sender: FDA-Public Use
  Company Number: BR-ROCHE-1060004

PATIENT
  Age: 64 Year
  Sex: Female
  Weight: 66 kg

DRUGS (3)
  1. HERCEPTIN [Suspect]
     Indication: METASTASES TO LUNG
     Dosage: 13APPLICATIONS, SPACED IN 21 DAYS; LATEST INUSION ON 25/JUL/2013
     Route: 065
     Dates: start: 20090506, end: 20100113
  2. HERCEPTIN [Suspect]
     Dosage: 14DAYS WITH REST OF SEVEN DAYS
     Route: 065
     Dates: start: 20120411
  3. XELODA [Suspect]
     Indication: METASTASES TO LUNG
     Dosage: 6 TABLETS(3 IN MORNNG, 3 IN NIGHT SPACED IN 14 DAYS
     Route: 065
     Dates: start: 20120411, end: 201305

REACTIONS (4)
  - Disease progression [Unknown]
  - Pleural fibrosis [Not Recovered/Not Resolved]
  - Fatigue [Not Recovered/Not Resolved]
  - Blister [Recovering/Resolving]
